FAERS Safety Report 24367086 (Version 1)
Quarter: 2024Q3

REPORT INFORMATION
  Report Type: Spontaneous
  Country: CN (occurrence: CN)
  Receive Date: 20240926
  Receipt Date: 20240926
  Transmission Date: 20241016
  Serious: Yes (Hospitalization)
  Sender: NOVO NORDISK
  Company Number: None

PATIENT
  Age: 59 Year
  Sex: Female
  Weight: 50.5 kg

DRUGS (8)
  1. INSULIN DETEMIR [Suspect]
     Active Substance: INSULIN DETEMIR
     Indication: Type 2 diabetes mellitus
     Dosage: 12 IU, QD
     Route: 058
     Dates: start: 20240827, end: 20240827
  2. RYZODEG 70/30 [Suspect]
     Active Substance: INSULIN ASPART\INSULIN DEGLUDEC
     Indication: Type 2 diabetes mellitus
     Dosage: 24 IU, QD(12U IN THE MORNING AND 12U IN THE EVENING)
     Route: 058
     Dates: start: 20240826, end: 20240826
  3. INSULIN LISPRO [Concomitant]
     Active Substance: INSULIN LISPRO
     Dosage: 28 IU, QD(6U-12U-10U )
     Route: 058
     Dates: start: 20240821, end: 20240822
  4. INSULIN LISPRO [Concomitant]
     Active Substance: INSULIN LISPRO
     Dosage: 28 IU, QD(7U-11U-10U )
     Route: 058
     Dates: start: 20240822, end: 20240823
  5. INSULIN LISPRO [Concomitant]
     Active Substance: INSULIN LISPRO
     Dosage: 27 IU, QD(7U-10U-10U )
     Route: 058
     Dates: start: 20240824, end: 20240825
  6. INSULIN LISPRO [Concomitant]
     Active Substance: INSULIN LISPRO
     Dosage: 21 IU, QD(6U-8U-7U )
     Route: 058
     Dates: start: 20240825
  7. INSULIN LISPRO [Concomitant]
     Active Substance: INSULIN LISPRO
     Indication: Type 2 diabetes mellitus
     Dosage: 6 IU, TID
     Route: 058
     Dates: start: 20240819, end: 20240820
  8. INSULIN LISPRO [Concomitant]
     Active Substance: INSULIN LISPRO
     Dosage: 19 IU, QD(6U-6U-7U )
     Route: 058
     Dates: start: 20240820, end: 20240821

REACTIONS (1)
  - Drug eruption [Recovered/Resolved]

NARRATIVE: CASE EVENT DATE: 20240827
